FAERS Safety Report 6492488-X (Version None)
Quarter: 2009Q4

REPORT INFORMATION
  Report Type: 
  Country: None (occurrence: None)
  Receive Date: 20091214
  Receipt Date: 20091126
  Transmission Date: 20100525
  Serious: Yes (Other)
  Sender: FDA-Public Use
  Company Number: BR-ASTRAZENECA-2009SE29204

PATIENT
  Age: 792 Month
  Sex: Female

DRUGS (9)
  1. CRESTOR [Suspect]
     Indication: HYPERCHOLESTEROLAEMIA
     Route: 048
  2. ATACAND HCT [Suspect]
     Indication: HYPERTENSION
     Dosage: 16/12.5 MG, DAILY
     Route: 048
     Dates: start: 20040101, end: 20090401
  3. ATACAND [Suspect]
     Indication: HYPERTENSION
     Route: 048
     Dates: start: 20090601
  4. AMLODIPINE BESYLATE [Concomitant]
     Indication: HYPERTENSION
     Route: 048
  5. PURAN T4 [Concomitant]
     Indication: HYPOTHYROIDISM
     Route: 048
  6. ASPIRIN [Concomitant]
     Indication: PLATELET AGGREGATION INHIBITION
     Route: 048
  7. APRESSOLINE [Concomitant]
     Indication: HYPERTENSION
     Route: 048
  8. FUROSEMIDE [Concomitant]
     Indication: HYPERTENSION
     Route: 048
  9. CALCITRIOL [Concomitant]
     Indication: MINERAL SUPPLEMENTATION
     Route: 048

REACTIONS (4)
  - GASTRITIS [None]
  - HYPERTENSION [None]
  - PSORIASIS [None]
  - RENAL FAILURE [None]
